FAERS Safety Report 6237223-5 (Version None)
Quarter: 2009Q2

REPORT INFORMATION
  Report Type: 
  Country: None (occurrence: None)
  Receive Date: 20090619
  Receipt Date: 20090608
  Transmission Date: 20091009
  Serious: Yes (Hospitalization, Other)
  Sender: FDA-Public Use
  Company Number: US-ELI_LILLY_AND_COMPANY-US200906002152

PATIENT
  Sex: Male

DRUGS (8)
  1. CYMBALTA [Suspect]
     Indication: NEURALGIA
     Dosage: 30 MG, DAILY (1/D)
     Dates: start: 20090101, end: 20090101
  2. CYMBALTA [Suspect]
     Dosage: 30 MG, 2/D
     Dates: start: 20090101, end: 20090301
  3. CYMBALTA [Suspect]
     Dosage: 60 MG, DAILY (1/D)
     Dates: start: 20090301, end: 20090101
  4. CYMBALTA [Suspect]
     Dosage: 60 MG, 2/D
     Dates: start: 20090101
  5. LYRICA [Concomitant]
  6. BACLOFEN [Concomitant]
  7. SIMVASTATIN [Concomitant]
  8. NAPROXEN [Concomitant]

REACTIONS (5)
  - ATRIAL FIBRILLATION [None]
  - BLOOD SODIUM DECREASED [None]
  - OFF LABEL USE [None]
  - PERICARDIAL EFFUSION [None]
  - PLEURAL EFFUSION [None]
